FAERS Safety Report 7724305-1 (Version None)
Quarter: 2011Q3

REPORT INFORMATION
  Report Type: 
  Country: None (occurrence: None)
  Receive Date: 20110829
  Receipt Date: 20110818
  Transmission Date: 20111222
  Serious: Yes (Other)
  Sender: FDA-Public Use
  Company Number: BG-ACCORD-008702

PATIENT
  Age: 63 Year
  Sex: Female

DRUGS (1)
  1. PACLITAXEL [Suspect]
     Indication: BREAST CANCER
     Dosage: INTRAVENOUS
     Route: 042

REACTIONS (4)
  - SKIN HYPERPIGMENTATION [None]
  - VASCULAR RUPTURE [None]
  - DERMATITIS [None]
  - INFUSION SITE EXTRAVASATION [None]
